FAERS Safety Report 4479985-3 (Version None)
Quarter: 2004Q3

REPORT INFORMATION
  Report Type: 
  Country: None (occurrence: None)
  Receive Date: 20040930
  Receipt Date: 20040702
  Transmission Date: 20050211
  Serious: Yes (Disabling)
  Sender: FDA-Public Use
  Company Number: 200410132BBE

PATIENT
  Age: 47 Year
  Sex: Female

DRUGS (8)
  1. GAMUNEX [Suspect]
     Indication: BLOOD IMMUNOGLOBULIN G DECREASED
     Dosage: 36 G, Q3WK, INTRAVENOUS
     Route: 042
     Dates: start: 20040101, end: 20040401
  2. THYROXIN [Concomitant]
  3. PROZAC [Concomitant]
  4. NASACORT [Concomitant]
  5. SEROQUEL [Concomitant]
  6. TRAZODONE HCL [Concomitant]
  7. AZMACORT [Concomitant]
  8. KLONOPIN [Concomitant]

REACTIONS (4)
  - CONDITION AGGRAVATED [None]
  - DRUG INEFFECTIVE [None]
  - FATIGUE [None]
  - SINUSITIS [None]
